FAERS Safety Report 9284513 (Version 3)
Quarter: 2013Q2

REPORT INFORMATION
  Report Type: Report from Study
  Country: RS (occurrence: RS)
  Receive Date: 20130510
  Receipt Date: 20130607
  Transmission Date: 20140414
  Serious: Yes (Hospitalization)
  Sender: FDA-Public Use
  Company Number: RS-VERTEX PHARMACEUTICALS INC-2013-005911

PATIENT
  Age: 58 Year
  Sex: Male
  Weight: 88 kg

DRUGS (9)
  1. VX-950 (TELAPREVIR) [Suspect]
     Indication: HEPATITIS C
     Dosage: 750 MG, TID
     Route: 048
     Dates: start: 20130110, end: 20130404
  2. COPEGUS [Suspect]
     Indication: HEPATITIS C
     Dosage: DOSAGE FORM: TABLET
     Route: 048
     Dates: start: 20130430
  3. COPEGUS [Suspect]
     Dosage: DOSAGE FORM: TABLET
     Route: 048
     Dates: start: 20130405, end: 20130429
  4. COPEGUS [Suspect]
     Dosage: DOSAGE FORM: TABLET
     Route: 048
     Dates: start: 20130110, end: 20130403
  5. PEGASYS [Suspect]
     Indication: HEPATITIS C
     Dosage: DOSAGE FORM: INJECTION
     Route: 058
     Dates: start: 20130417, end: 20130507
  6. PEGASYS [Suspect]
     Dosage: DOSAGE FORM: INJECTION
     Route: 058
     Dates: start: 20130110, end: 20130328
  7. PEGASYS [Suspect]
     Dosage: DOSAGE FORM: INJECTION
     Route: 058
     Dates: start: 20130515
  8. TRITACE [Concomitant]
     Indication: HYPERTENSION
     Dosage: DOSAGE FORM: TABLET
     Route: 048
  9. BISOPROLOL [Concomitant]
     Indication: HYPERTENSION
     Dosage: DOSAGE FORM: TABLET

REACTIONS (1)
  - Pyrexia [Recovered/Resolved]
